FAERS Safety Report 6867707-8 (Version None)
Quarter: 2010Q3

REPORT INFORMATION
  Report Type: 
  Country: None (occurrence: None)
  Receive Date: 20100722
  Receipt Date: 20100528
  Transmission Date: 20110219
  Serious: No
  Sender: FDA-Public Use
  Company Number: US-BAUSCH-2010BL002898

PATIENT
  Age: 84 Year
  Sex: Male

DRUGS (2)
  1. OPCON-A [Suspect]
     Indication: SEASONAL ALLERGY
     Route: 047
  2. FLOMAX [Concomitant]
     Indication: PROSTATOMEGALY
     Route: 048

REACTIONS (1)
  - DYSURIA [None]
